FAERS Safety Report 12523362 (Version 1)
Quarter: 2016Q3

REPORT INFORMATION
  Report Type: Spontaneous
  Country: US (occurrence: US)
  Receive Date: 20160702
  Receipt Date: 20160702
  Transmission Date: 20161109
  Serious: Yes (Other)
  Sender: FDA-Public Use
  Company Number: US-AMGEN-USASP2016082903

PATIENT
  Age: 67 Year
  Sex: Male

DRUGS (1)
  1. NEULASTA [Suspect]
     Active Substance: PEGFILGRASTIM
     Indication: PRODUCT USED FOR UNKNOWN INDICATION
     Dosage: UNK
     Route: 065

REACTIONS (13)
  - Pain in extremity [Not Recovered/Not Resolved]
  - Activities of daily living impaired [Unknown]
  - Musculoskeletal pain [Not Recovered/Not Resolved]
  - Application site haemorrhage [Recovered/Resolved]
  - Arthritis [Not Recovered/Not Resolved]
  - Asthenia [Unknown]
  - Pneumonia [Unknown]
  - Fatigue [Unknown]
  - Myalgia [Not Recovered/Not Resolved]
  - Joint range of motion decreased [Unknown]
  - Neuropathy peripheral [Unknown]
  - Application site pain [Not Recovered/Not Resolved]
  - Sleep disorder [Unknown]
